APPROVED DRUG PRODUCT: MELPHALAN
Active Ingredient: MELPHALAN
Strength: 2MG
Dosage Form/Route: TABLET;ORAL
Application: A207809 | Product #001
Applicant: ALVOGEN INC
Approved: Mar 22, 2017 | RLD: No | RS: No | Type: DISCN